FAERS Safety Report 5314819-6 (Version None)
Quarter: 2007Q2

REPORT INFORMATION
  Report Type: 
  Country: None (occurrence: None)
  Receive Date: 20070502
  Receipt Date: 20070423
  Transmission Date: 20071010
  Serious: Yes (Death, Life-Threatening, Other)
  Sender: FDA-Public Use
  Company Number: GB-JNJFOC-20070404943

PATIENT
  Sex: Female
  Weight: 53 kg

DRUGS (5)
  1. REMICADE [Suspect]
     Indication: RHEUMATOID ARTHRITIS
  2. ARTHROTEC [Concomitant]
  3. FERROUS SULFATE TAB [Concomitant]
  4. LOSARTAN POSTASSIUM [Concomitant]
  5. PARACETAMOL [Concomitant]

REACTIONS (2)
  - NEPHROTIC SYNDROME [None]
  - PNEUMONIA [None]
